FAERS Safety Report 8430984-6 (Version None)
Quarter: 2012Q2

REPORT INFORMATION
  Report Type: 
  Country: None (occurrence: None)
  Receive Date: 20120612
  Receipt Date: 20120608
  Transmission Date: 20120825
  Serious: Yes (Hospitalization)
  Sender: FDA-Public Use
  Company Number: US-PFIZER INC-2012104082

PATIENT
  Sex: Female
  Weight: 114.6 kg

DRUGS (4)
  1. TETRAHYDROZOLINE [Concomitant]
     Indication: DRY EYE
     Dosage: 0.05%, GTT, QID
     Route: 047
     Dates: start: 20120430
  2. DESVENLAFAXINE SUCCINATE [Suspect]
     Indication: MAJOR DEPRESSION
     Dosage: 50 MG, 1X/DAY
     Route: 048
     Dates: start: 20120417, end: 20120422
  3. IBUPROFEN [Concomitant]
     Indication: BACK PAIN
     Dosage: 600 MG, AS NEEDED
     Route: 048
     Dates: start: 20080101
  4. CYMBALTA [Concomitant]
     Indication: DEPRESSION
     Dosage: 30 MG, 1X/DAY
     Route: 048
     Dates: start: 20120423

REACTIONS (2)
  - DEPRESSION [None]
  - SUICIDAL IDEATION [None]
